FAERS Safety Report 9071724 (Version 9)
Quarter: 2015Q2

REPORT INFORMATION
  Report Type: Spontaneous
  Country: JP (occurrence: JP)
  Receive Date: 20130206
  Receipt Date: 20150422
  Transmission Date: 20150821
  Serious: Yes (Life-Threatening, Hospitalization, Disabling)
  Sender: FDA-Public Use
  Company Number: JP-B.I. PHARMACEUTICALS,INC./RIDGEFIELD-2013-BI-03176NB

PATIENT
  Age: 71 Year
  Sex: Male
  Weight: 70 kg

DRUGS (11)
  1. TANATRIL [Concomitant]
     Active Substance: IMIDAPRIL
     Indication: HYPERTENSION
     Dosage: 2.5 MG
     Route: 048
     Dates: start: 20110526, end: 20130201
  2. SUNRYTHM [Concomitant]
     Active Substance: PILSICAINIDE HYDROCHLORIDE
     Indication: ATRIAL FIBRILLATION
     Dosage: 75 MG
     Route: 048
     Dates: start: 20110526, end: 20130201
  3. MUCOSTA [Concomitant]
     Active Substance: REBAMIPIDE
     Indication: GASTRITIS PROPHYLAXIS
     Dosage: 300 MG
     Route: 048
     Dates: start: 20130119, end: 20130130
  4. BAYASPIRIN [Concomitant]
     Active Substance: ASPIRIN
     Indication: ANGINA PECTORIS
     Dosage: 100 MG
     Route: 048
     Dates: start: 20110526, end: 20121109
  5. PRAZAXA [Suspect]
     Active Substance: DABIGATRAN ETEXILATE MESYLATE
     Indication: ATRIAL FIBRILLATION
     Dosage: 220 MG
     Route: 048
     Dates: start: 20121109, end: 20130130
  6. ARTIST [Concomitant]
     Active Substance: CARVEDILOL
     Indication: HYPERTENSION
     Dosage: 5 MG
     Route: 048
     Dates: start: 20110526
  7. TAKEPRON [Concomitant]
     Active Substance: LANSOPRAZOLE
     Indication: GASTRIC MUCOSAL LESION
     Dosage: 15 MG
     Route: 048
     Dates: start: 20130123
  8. BUSCOPAN [Concomitant]
     Active Substance: BUTYLSCOPOLAMINE BROMIDE
     Indication: PRODUCT USED FOR UNKNOWN INDICATION
     Dosage: 10 MG
     Route: 048
  9. WARFARIN [Concomitant]
     Active Substance: WARFARIN
     Indication: THROMBOSIS PROPHYLAXIS
     Dosage: 3.25 MG
     Route: 048
     Dates: start: 20120914, end: 20121109
  10. LOXONIN [Suspect]
     Active Substance: LOXOPROFEN SODIUM
     Indication: BACK PAIN
     Dosage: 180 MG
     Route: 048
     Dates: start: 20130119, end: 20130130
  11. MEVALOTIN [Concomitant]
     Active Substance: PRAVASTATIN SODIUM
     Indication: HYPERLIPIDAEMIA
     Dosage: 5 MG
     Route: 048
     Dates: start: 20111013, end: 20121130

REACTIONS (5)
  - Lumbar spinal stenosis [Unknown]
  - Duodenal ulcer haemorrhage [Not Recovered/Not Resolved]
  - Plasma cell myeloma [Not Recovered/Not Resolved]
  - Activated partial thromboplastin time prolonged [Unknown]
  - Acute kidney injury [Not Recovered/Not Resolved]

NARRATIVE: CASE EVENT DATE: 20130119
